FAERS Safety Report 10996158 (Version 1)
Quarter: 2015Q2

REPORT INFORMATION
  Report Type: Report from Study
  Country: AU (occurrence: AU)
  Receive Date: 20150407
  Receipt Date: 20150407
  Transmission Date: 20150821
  Serious: Yes (Hospitalization)
  Sender: FDA-Public Use
  Company Number: AU-MYLANLABS-2015M1011113

PATIENT

DRUGS (4)
  1. IBUPROFEN. [Suspect]
     Active Substance: IBUPROFEN
     Route: 048
  2. DIAZEPAM. [Suspect]
     Active Substance: DIAZEPAM
     Route: 048
  3. BACLOFEN. [Suspect]
     Active Substance: BACLOFEN
     Route: 048
  4. OXYCODONE [Suspect]
     Active Substance: OXYCODONE
     Route: 048

REACTIONS (3)
  - Overdose [Unknown]
  - Sedation [Unknown]
  - Tachycardia [Unknown]
